FAERS Safety Report 23626207 (Version 3)
Quarter: 2025Q2

REPORT INFORMATION
  Report Type: Spontaneous
  Country: US (occurrence: US)
  Receive Date: 20240313
  Receipt Date: 20250516
  Transmission Date: 20250717
  Serious: No
  Sender: TRAVERE THERAPEUTICS
  Company Number: US-TRAVERE-2024TVT00231

PATIENT
  Age: 34 Year
  Sex: Male

DRUGS (1)
  1. FILSPARI [Suspect]
     Active Substance: SPARSENTAN
     Indication: IgA nephropathy
     Route: 048
     Dates: start: 20240229

REACTIONS (4)
  - Gout [Unknown]
  - Dizziness [Unknown]
  - Weight decreased [Unknown]
  - Hypersensitivity [Unknown]
